FAERS Safety Report 15577706 (Version 2)
Quarter: 2018Q4

REPORT INFORMATION
  Report Type: Spontaneous
  Country: US (occurrence: US)
  Receive Date: 20181102
  Receipt Date: 20181204
  Transmission Date: 20190205
  Serious: Yes (Other)
  Sender: FDA-Public Use
  Company Number: US-009507513-1810USA010697

PATIENT
  Sex: Female

DRUGS (1)
  1. NEXPLANON [Suspect]
     Active Substance: ETONOGESTREL
     Dosage: 68 MILLIGRAM, SUBDERMAL IMPLANT
     Route: 059
     Dates: start: 201807

REACTIONS (5)
  - Pregnancy with implant contraceptive [Recovered/Resolved]
  - Abortion spontaneous [Not Recovered/Not Resolved]
  - Unintended pregnancy [Recovered/Resolved]
  - Complication associated with device [Not Recovered/Not Resolved]
  - Anembryonic gestation [Recovered/Resolved]

NARRATIVE: CASE EVENT DATE: 2018
